FAERS Safety Report 11245547 (Version 1)
Quarter: 2015Q3

REPORT INFORMATION
  Report Type: Spontaneous
  Country: US (occurrence: US)
  Receive Date: 20150707
  Receipt Date: 20150707
  Transmission Date: 20151125
  Serious: Yes (Hospitalization, Other)
  Sender: FDA-Public Use
  Company Number: US-INCYTE CORPORATION-2015IN003112

PATIENT
  Age: 85 Year
  Sex: Male

DRUGS (8)
  1. ESOMEPRAZOLE [Concomitant]
     Active Substance: ESOMEPRAZOLE
  2. MULTIVITAMIN                       /00097801/ [Concomitant]
     Active Substance: VITAMINS
  3. CALCIUM CITRATE [Concomitant]
     Active Substance: CALCIUM CITRATE
  4. AMLODIPINE [Concomitant]
     Active Substance: AMLODIPINE BESYLATE
  5. SENOKOT [Concomitant]
     Active Substance: SENNOSIDES
  6. IRON [Concomitant]
     Active Substance: IRON
     Indication: EPISTAXIS
     Dosage: FOR 30 DAYS
  7. FINASTERIDE. [Concomitant]
     Active Substance: FINASTERIDE
  8. JAKAFI [Suspect]
     Active Substance: RUXOLITINIB
     Indication: POLYCYTHAEMIA VERA
     Dosage: 10 MG, BID
     Route: 048
     Dates: start: 20150601

REACTIONS (2)
  - Epistaxis [Unknown]
  - Vertigo [Unknown]

NARRATIVE: CASE EVENT DATE: 201506
